FAERS Safety Report 22385546 (Version 5)
Quarter: 2024Q2

REPORT INFORMATION
  Report Type: Spontaneous
  Country: US (occurrence: US)
  Receive Date: 20230530
  Receipt Date: 20240530
  Transmission Date: 20240715
  Serious: Yes (Hospitalization, Other)
  Sender: FDA-Public Use
  Company Number: US-PFIZER INC-PV202300092387

PATIENT
  Age: 60 Year
  Sex: Female

DRUGS (7)
  1. OXBRYTA [Interacting]
     Active Substance: VOXELOTOR
     Indication: Sickle cell anaemia
     Dosage: 3 TABLETS, ONCE DAILY
     Route: 048
     Dates: start: 20220906
  2. OXBRYTA [Interacting]
     Active Substance: VOXELOTOR
     Dosage: THREE TABLETS, ONCE DAILY
     Route: 048
     Dates: start: 202210
  3. HYDROXYUREA [Interacting]
     Active Substance: HYDROXYUREA
     Dosage: UNK
  4. ASPIRIN [Concomitant]
     Active Substance: ASPIRIN
     Dosage: UNK
  5. METOPROLOL [Concomitant]
     Active Substance: METOPROLOL
     Indication: Hypertension
     Dosage: UNK
  6. PANTOPRAZOLE [Concomitant]
     Active Substance: PANTOPRAZOLE
     Dosage: 40 MG
  7. ENALAPRIL [Concomitant]
     Active Substance: ENALAPRIL
     Indication: Hypertension
     Dosage: UNK

REACTIONS (5)
  - Femur fracture [Unknown]
  - Arrhythmia [Unknown]
  - Drug interaction [Not Recovered/Not Resolved]
  - Gastrooesophageal reflux disease [Not Recovered/Not Resolved]
  - Condition aggravated [Not Recovered/Not Resolved]

NARRATIVE: CASE EVENT DATE: 20231215
